FAERS Safety Report 11483617 (Version 1)
Quarter: 2015Q3

REPORT INFORMATION
  Report Type: Spontaneous
  Country: US (occurrence: US)
  Receive Date: 20150903
  Receipt Date: 20150903
  Transmission Date: 20151125
  Serious: No
  Sender: FDA-Public Use
  Company Number: US-ELI_LILLY_AND_COMPANY-US201207004466

PATIENT
  Age: 70 Year
  Sex: Female
  Weight: 72.11 kg

DRUGS (6)
  1. ACETYLSALICYLIC ACID [Concomitant]
     Active Substance: ASPIRIN
     Dosage: UNK
  2. CYMBALTA [Suspect]
     Active Substance: DULOXETINE HYDROCHLORIDE
     Indication: DEPRESSION
     Dosage: UNK
     Dates: start: 201110
  3. ENALAPRIL [Concomitant]
     Active Substance: ENALAPRIL
     Indication: HYPERTENSION
     Dosage: UNK
  4. LASIX [Concomitant]
     Active Substance: FUROSEMIDE
     Dosage: UNK
  5. ALPRAZOLAM. [Concomitant]
     Active Substance: ALPRAZOLAM
     Indication: ANXIETY
     Dosage: UNK
     Dates: start: 1982
  6. HUMIRA                                  /USA/ [Concomitant]
     Dosage: 40 MG, UNK
     Dates: start: 200909

REACTIONS (6)
  - Intentional product misuse [Recovered/Resolved]
  - Malaise [Unknown]
  - Back pain [Unknown]
  - Sleep disorder [Unknown]
  - Crohn^s disease [Unknown]
  - Nervousness [Unknown]

NARRATIVE: CASE EVENT DATE: 201202
